FAERS Safety Report 8091991-9 (Version None)
Quarter: 2012Q1

REPORT INFORMATION
  Report Type: 
  Country: None (occurrence: None)
  Receive Date: 20120131
  Receipt Date: 20120119
  Transmission Date: 20120608
  Serious: Yes (Other)
  Sender: FDA-Public Use
  Company Number: SE-JNJFOC-20120108694

PATIENT

DRUGS (4)
  1. PREDNISOLONE [Suspect]
     Dosage: DOSE WAS TAPERED AND WITHDRAWN DURING 6-8 WEEKS
     Route: 048
  2. INFLIXIMAB, RECOMBINANT [Suspect]
     Indication: COLITIS ULCERATIVE
     Dosage: SINGLE INFUSION
     Route: 042
  3. INFLIXIMAB, RECOMBINANT [Suspect]
     Dosage: 9 MONTHS AFTER FIRST DOSE
     Route: 042
  4. PREDNISOLONE [Suspect]
     Indication: COLITIS ULCERATIVE
     Dosage: MEDIAN DOSE OF 64(48-96) MG/DAY.
     Route: 042

REACTIONS (2)
  - DRUG INEFFECTIVE [None]
  - COLECTOMY [None]
